FAERS Safety Report 9542293 (Version 2)
Quarter: 2014Q1

REPORT INFORMATION
  Report Type: Spontaneous
  Country: US (occurrence: None)
  Receive Date: 20130524
  Receipt Date: 20130724
  Transmission Date: 20141002
  Serious: Yes (Other)
  Sender: FDA-Public Use
  Company Number: PHEH2013US003877

PATIENT
  Age: 56 Year
  Sex: Female
  Weight: 59 kg

DRUGS (2)
  1. GILENYA [Suspect]
     Indication: MULTIPLE SCLEROSIS
     Route: 048
     Dates: start: 20130116
  2. BACLOFEN (BACLOFEN) [Concomitant]

REACTIONS (8)
  - Musculoskeletal pain [None]
  - Neck pain [None]
  - Joint stiffness [None]
  - Fibromyalgia [None]
  - Nasopharyngitis [None]
  - Back pain [None]
  - Headache [None]
  - Cough [None]
